FAERS Safety Report 12631883 (Version 3)
Quarter: 2016Q3

REPORT INFORMATION
  Report Type: Spontaneous
  Country: US (occurrence: US)
  Receive Date: 20160808
  Receipt Date: 20160823
  Transmission Date: 20161109
  Serious: No
  Sender: FDA-Public Use
  Company Number: US-BEH-2016061323

PATIENT
  Sex: Female
  Weight: 56.7 kg

DRUGS (33)
  1. ACETAMINOPHEN. [Concomitant]
     Active Substance: ACETAMINOPHEN
  2. XOPENEX [Concomitant]
     Active Substance: LEVALBUTEROL HYDROCHLORIDE
  3. DICYCLOMINE [Concomitant]
     Active Substance: DICYCLOMINE HYDROCHLORIDE
  4. RANITIDINE. [Concomitant]
     Active Substance: RANITIDINE
  5. SELENIUM [Concomitant]
     Active Substance: SELENIUM
  6. VITAMIN D3 [Concomitant]
     Active Substance: CHOLECALCIFEROL
  7. ZAFIRLUKAST. [Concomitant]
     Active Substance: ZAFIRLUKAST
  8. GAS-X [Concomitant]
     Active Substance: DIMETHICONE
  9. ZINC [Concomitant]
     Active Substance: ZINC\ZINC CHLORIDE
  10. ZYRTEC [Concomitant]
     Active Substance: CETIRIZINE HYDROCHLORIDE
  11. CALCIUM +D3 [Concomitant]
     Active Substance: CALCIUM\CHOLECALCIFEROL
  12. PROMETHAZINE [Concomitant]
     Active Substance: PROMETHAZINE\PROMETHAZINE HYDROCHLORIDE
  13. DIPHENHYDRAMINE. [Concomitant]
     Active Substance: DIPHENHYDRAMINE
  14. LIDOCAINE/PRILOCAINE [Concomitant]
     Active Substance: LIDOCAINE\PRILOCAINE
  15. TIROSINT [Concomitant]
     Active Substance: LEVOTHYROXINE SODIUM
  16. MYRBETRIQ [Concomitant]
     Active Substance: MIRABEGRON
  17. HIZENTRA [Suspect]
     Active Substance: HUMAN IMMUNOGLOBULIN G
     Indication: IMMUNODEFICIENCY COMMON VARIABLE
     Dosage: 10 G, QW
     Route: 058
  18. ADVAIR HFA [Concomitant]
     Active Substance: FLUTICASONE PROPIONATE\SALMETEROL XINAFOATE
  19. PROPAFENONE. [Concomitant]
     Active Substance: PROPAFENONE
  20. IPRATROPIUM BROMIDE. [Concomitant]
     Active Substance: IPRATROPIUM BROMIDE
  21. MAGNESIUM [Concomitant]
     Active Substance: MAGNESIUM
  22. QVAR [Concomitant]
     Active Substance: BECLOMETHASONE DIPROPIONATE
  23. LEVALBUTEROL. [Concomitant]
     Active Substance: LEVALBUTEROL
  24. PROBIOTIC [Concomitant]
     Active Substance: PROBIOTICS NOS
  25. COLACE [Concomitant]
     Active Substance: DOCUSATE SODIUM
  26. BIOTIN [Concomitant]
     Active Substance: BIOTIN
  27. LIDOCAINE. [Concomitant]
     Active Substance: LIDOCAINE
  28. ASPIRIN. [Concomitant]
     Active Substance: ASPIRIN
  29. ZIPSOR [Concomitant]
     Active Substance: DICLOFENAC POTASSIUM
  30. AZELASTINE [Concomitant]
     Active Substance: AZELASTINE
  31. EPIPEN [Concomitant]
     Active Substance: EPINEPHRINE
  32. PANTOPRAZOLE [Concomitant]
     Active Substance: PANTOPRAZOLE SODIUM
  33. LIOTHYRONINE [Concomitant]
     Active Substance: LIOTHYRONINE

REACTIONS (1)
  - Malaise [Unknown]
